FAERS Safety Report 21403729 (Version 1)
Quarter: 2022Q4

REPORT INFORMATION
  Report Type: Spontaneous
  Country: US (occurrence: None)
  Receive Date: 20221002
  Receipt Date: 20221002
  Transmission Date: 20230112
  Serious: Yes (Other)
  Sender: FDA-Public Use
  Company Number: None

PATIENT
  Age: 68 Year
  Sex: Female
  Weight: 56.25 kg

DRUGS (13)
  1. PROLIA [Suspect]
     Active Substance: DENOSUMAB
     Indication: Osteoporosis
     Dates: start: 20190109, end: 20210317
  2. CLOBETASOL PROPIONATE [Concomitant]
     Active Substance: CLOBETASOL PROPIONATE
  3. Triamicinolone acetonide [Concomitant]
  4. FOSAMAX [Concomitant]
     Active Substance: ALENDRONATE SODIUM
  5. REPATHA [Concomitant]
     Active Substance: EVOLOCUMAB
  6. Sureclick [Concomitant]
  7. EZETIMIBE [Concomitant]
  8. iron slow release [Concomitant]
  9. VITAMIN D3 [Concomitant]
     Active Substance: CHOLECALCIFEROL
  10. women^s 50 plus multivitamin [Concomitant]
  11. omega-3 [Concomitant]
  12. FISH OIL [Concomitant]
  13. aspirin [Concomitant]

REACTIONS (2)
  - Alopecia [None]
  - Hair colour changes [None]

NARRATIVE: CASE EVENT DATE: 20190109
